FAERS Safety Report 13269908 (Version 2)
Quarter: 2017Q2

REPORT INFORMATION
  Report Type: Spontaneous
  Country: US (occurrence: US)
  Receive Date: 20170224
  Receipt Date: 20170418
  Transmission Date: 20170830
  Serious: No
  Sender: FDA-Public Use
  Company Number: US-TAIHO ONCOLOGY INC-EU-2017-00308

PATIENT
  Sex: Female

DRUGS (11)
  1. AZITHROMYCIN ANHYDROUS. [Concomitant]
     Active Substance: AZITHROMYCIN ANHYDROUS
     Dosage: NI
  2. BESIVANCE [Concomitant]
     Active Substance: BESIFLOXACIN
     Dosage: NI
  3. CLONIDINE. [Concomitant]
     Active Substance: CLONIDINE
     Dosage: NI
  4. DEXAMETHASONE. [Concomitant]
     Active Substance: DEXAMETHASONE
     Dosage: NI
  5. BACLOFEN. [Concomitant]
     Active Substance: BACLOFEN
     Dosage: NI
  6. CIPROFLOXACIN. [Concomitant]
     Active Substance: CIPROFLOXACIN
     Dosage: NI
  7. DICYCLOMINE [Concomitant]
     Active Substance: DICYCLOMINE HYDROCHLORIDE
     Dosage: NI
  8. AMLODIPINE [Concomitant]
     Active Substance: AMLODIPINE BESYLATE
     Dosage: NI
  9. ENOXAPARIN [Concomitant]
     Active Substance: ENOXAPARIN
  10. LONSURF [Suspect]
     Active Substance: TIPIRACIL HYDROCHLORIDE\TRIFLURIDINE
     Indication: COLON CANCER
     Dosage: LONSURF STARTED EITHER IN JUNE OR JULY 2016
     Route: 048
     Dates: start: 2016
  11. LOMOTIL [Concomitant]
     Active Substance: ATROPINE SULFATE\DIPHENOXYLATE HYDROCHLORIDE
     Dosage: NI

REACTIONS (3)
  - Diarrhoea [Unknown]
  - Cystitis [Unknown]
  - Fatigue [Unknown]
